FAERS Safety Report 7633978-3 (Version None)
Quarter: 2011Q3

REPORT INFORMATION
  Report Type: 
  Country: None (occurrence: None)
  Receive Date: 20110725
  Receipt Date: 20110719
  Transmission Date: 20111222
  Serious: Yes (Hospitalization, Disabling, Other)
  Sender: FDA-Public Use
  Company Number: US-PFIZER INC-2011164071

PATIENT
  Sex: Female
  Weight: 65.76 kg

DRUGS (7)
  1. DILANTIN-125 [Suspect]
     Dosage: 250 MG, 1X/DAY
  2. DILANTIN-125 [Suspect]
     Dosage: 300 MG, 1X/DAY
     Dates: start: 20110120
  3. VIMPAT [Concomitant]
     Dosage: UNK
  4. ASPIRIN [Concomitant]
     Dosage: UNK
  5. TEMPRA [Concomitant]
     Dosage: UNK
  6. DILANTIN-125 [Suspect]
     Indication: GRAND MAL CONVULSION
     Dosage: 350 MG, 1X/DAY
  7. CALCIUM [Concomitant]
     Dosage: UNK

REACTIONS (19)
  - VISUAL IMPAIRMENT [None]
  - DYSSTASIA [None]
  - TREMOR [None]
  - CONVULSION [None]
  - CONCUSSION [None]
  - EPILEPSY [None]
  - LACK OF SPONTANEOUS SPEECH [None]
  - DIZZINESS [None]
  - FALL [None]
  - GAIT DISTURBANCE [None]
  - VITAMIN D DECREASED [None]
  - HEAD INJURY [None]
  - DISORIENTATION [None]
  - MYOCARDIAL INFARCTION [None]
  - STATUS EPILEPTICUS [None]
  - ACTIVITIES OF DAILY LIVING IMPAIRED [None]
  - HYPOTHYROIDISM [None]
  - DRUG LEVEL INCREASED [None]
  - WEIGHT DECREASED [None]
